FAERS Safety Report 9065182 (Version 1)
Quarter: 2013Q1

REPORT INFORMATION
  Report Type: Spontaneous
  Country: US (occurrence: US)
  Receive Date: 20130214
  Receipt Date: 20130214
  Transmission Date: 20140127
  Serious: No
  Sender: FDA-Public Use
  Company Number: US-PFIZER INC-2013056523

PATIENT
  Sex: 0

DRUGS (2)
  1. MORPHINE SULFATE [Suspect]
     Dosage: UNK
  2. FENTANYL [Suspect]
     Dosage: UNK

REACTIONS (2)
  - Fatigue [Unknown]
  - Hypersomnia [Unknown]
